FAERS Safety Report 19450100 (Version 1)
Quarter: 2021Q2

REPORT INFORMATION
  Report Type: Report from Study
  Country: US (occurrence: US)
  Receive Date: 20210622
  Receipt Date: 20210622
  Transmission Date: 20210717
  Serious: No
  Sender: FDA-Public Use
  Company Number: US-BIOVITRUM-2021US4649

PATIENT
  Age: 52 Year
  Sex: Female

DRUGS (23)
  1. KINERET [Suspect]
     Active Substance: ANAKINRA
     Indication: PERICARDITIS
     Route: 058
     Dates: start: 20210511, end: 20210528
  2. ISONIAZID. [Concomitant]
     Active Substance: ISONIAZID
  3. IMURAN [Concomitant]
     Active Substance: AZATHIOPRINE
  4. BYSTOLIC [Concomitant]
     Active Substance: NEBIVOLOL HYDROCHLORIDE
  5. ALVOPRO [Concomitant]
  6. SYNTHROID [Concomitant]
     Active Substance: LEVOTHYROXINE SODIUM
  7. PREDNISONE. [Concomitant]
     Active Substance: PREDNISONE
  8. SPIRONOLACTONE. [Concomitant]
     Active Substance: SPIRONOLACTONE
  9. CALCIUM [Concomitant]
     Active Substance: CALCIUM
  10. VITAMIN B6 [Concomitant]
     Active Substance: PYRIDOXINE HYDROCHLORIDE
  11. MULTIVITAMINS [Concomitant]
     Active Substance: VITAMINS
  12. MAGNESIUM [Concomitant]
     Active Substance: MAGNESIUM
  13. ESTROGEN [Concomitant]
     Active Substance: ESTROGENS
  14. PROTONIX [Concomitant]
     Active Substance: PANTOPRAZOLE SODIUM
  15. KINERET [Suspect]
     Active Substance: ANAKINRA
     Indication: STILL^S DISEASE
     Route: 058
     Dates: start: 20210510
  16. GABAPENTIN. [Concomitant]
     Active Substance: GABAPENTIN
  17. IRBESARTAN. [Concomitant]
     Active Substance: IRBESARTAN
  18. PLAQUENIL [Concomitant]
     Active Substance: HYDROXYCHLOROQUINE SULFATE
  19. ALDACTONE [Concomitant]
     Active Substance: SPIRONOLACTONE
  20. OXYBUTYNIN. [Concomitant]
     Active Substance: OXYBUTYNIN CHLORIDE
  21. ZINC. [Concomitant]
     Active Substance: ZINC
  22. LEVOTHYROXINE. [Concomitant]
     Active Substance: LEVOTHYROXINE
  23. FOSAMAX [Concomitant]
     Active Substance: ALENDRONATE SODIUM

REACTIONS (13)
  - Injection site erythema [Unknown]
  - Injection site reaction [Unknown]
  - Hepatic enzyme increased [Unknown]
  - Syringe issue [Unknown]
  - Off label use [Recovered/Resolved]
  - Liver function test decreased [Unknown]
  - Injection site rash [Unknown]
  - Injection site discomfort [Unknown]
  - Rash [Unknown]
  - Injection site pain [Unknown]
  - Adverse drug reaction [Unknown]
  - Hypersensitivity [Unknown]
  - Incorrect dose administered [Unknown]

NARRATIVE: CASE EVENT DATE: 20210510
